FAERS Safety Report 6201253-X (Version None)
Quarter: 2009Q2

REPORT INFORMATION
  Report Type: 
  Country: None (occurrence: None)
  Receive Date: 20090519
  Receipt Date: 20090406
  Transmission Date: 20091009
  Serious: Yes (Other)
  Sender: FDA-Public Use
  Company Number: 2009S1005925

PATIENT
  Age: 73 Year
  Sex: Female

DRUGS (2)
  1. LINEZOLID [Suspect]
     Indication: OSTEOMYELITIS
     Dosage: 600 MG; Q12H
  2. FLUOXETINE [Suspect]
     Indication: DEPRESSION
     Dosage: 20 MG; DAILY

REACTIONS (5)
  - ADVERSE REACTION [None]
  - ENTEROCOCCAL INFECTION [None]
  - ESCHERICHIA INFECTION [None]
  - OSTEOMYELITIS BACTERIAL [None]
  - SEROTONIN SYNDROME [None]
